FAERS Safety Report 14508953 (Version 2)
Quarter: 2018Q3

REPORT INFORMATION
  Report Type: Report from Study
  Country: US (occurrence: US)
  Receive Date: 20180209
  Receipt Date: 20180920
  Transmission Date: 20181010
  Serious: Yes (Hospitalization, Other)
  Sender: FDA-Public Use
  Company Number: US-BRISTOL-MYERS SQUIBB COMPANY-BMS-2018-011344

PATIENT
  Age: 81 Year
  Sex: Male

DRUGS (2)
  1. NIVOLUMAB [Suspect]
     Active Substance: NIVOLUMAB
     Indication: PROPHYLAXIS
     Dosage: UNK
     Route: 065
     Dates: start: 20171115, end: 20180115
  2. IPILIMUMAB [Suspect]
     Active Substance: IPILIMUMAB
     Indication: PROPHYLAXIS
     Dosage: UNK
     Route: 065
     Dates: start: 20171115, end: 20180115

REACTIONS (4)
  - Hyperglycaemia [Recovered/Resolved]
  - Hyperkalaemia [Recovered/Resolved]
  - Hyponatraemia [Recovered/Resolved]
  - Diabetic ketoacidosis [Recovered/Resolved]

NARRATIVE: CASE EVENT DATE: 20180201
